FAERS Safety Report 8474880-7 (Version None)
Quarter: 2012Q2

REPORT INFORMATION
  Report Type: 
  Country: None (occurrence: None)
  Receive Date: 20120621
  Receipt Date: 20120606
  Transmission Date: 20120825
  Serious: Yes (Hospitalization)
  Sender: FDA-Public Use
  Company Number: FR-20120123

PATIENT
  Age: 26 Year
  Sex: Female

DRUGS (1)
  1. HEXABRIX 320 (IOXAGLIC ACID) , 11HX026D [Suspect]
     Indication: HYSTEROSALPINGOGRAM
     Dosage: 20 ML (20 ML,1 IN 1 TOTAL) VAGINAL
     Route: 067
     Dates: start: 20120314, end: 20120314

REACTIONS (5)
  - PRESYNCOPE [None]
  - PELVIC PAIN [None]
  - MUSCULAR WEAKNESS [None]
  - BLOOD PRESSURE DECREASED [None]
  - TREMOR [None]
